FAERS Safety Report 25007996 (Version 1)
Quarter: 2025Q1

REPORT INFORMATION
  Report Type: Other
  Country: GB (occurrence: GB)
  Receive Date: 20250225
  Receipt Date: 20250225
  Transmission Date: 20250408
  Serious: Yes (Other)
  Sender: MACLEODS
  Company Number: None

PATIENT

DRUGS (1)
  1. PANTOPRAZOLE [Suspect]
     Active Substance: PANTOPRAZOLE
     Indication: Product used for unknown indication
     Dosage: 40MG - ONCE A DAY
     Route: 042

REACTIONS (2)
  - Extrasystoles [Unknown]
  - Heart rate [Unknown]

NARRATIVE: CASE EVENT DATE: 20250211
